FAERS Safety Report 13105306 (Version 6)
Quarter: 2017Q2

REPORT INFORMATION
  Report Type: Report from Study
  Country: US (occurrence: US)
  Receive Date: 20170111
  Receipt Date: 20170518
  Transmission Date: 20170830
  Serious: Yes (Hospitalization, Other)
  Sender: FDA-Public Use
  Company Number: US-PFIZER INC-2016590589

PATIENT
  Age: 60 Year
  Sex: Female

DRUGS (3)
  1. IBRANCE [Suspect]
     Active Substance: PALBOCICLIB
     Indication: BREAST CANCER
     Dosage: 125 MG, DAILY
     Route: 048
     Dates: start: 20161206, end: 20170102
  2. IBRANCE [Suspect]
     Active Substance: PALBOCICLIB
     Dosage: 75 MG, CYCLIC (DAILY 3 WEEKS ON/1 WEEKS OFF)
     Route: 048
     Dates: start: 20170303
  3. IBRANCE [Suspect]
     Active Substance: PALBOCICLIB
     Dosage: 125 MG, CYCLIC (DAILY 3 WEEKS ON/1 WEEKS OFF)
     Route: 048
     Dates: start: 20170117, end: 20170302

REACTIONS (15)
  - Fungal infection [Unknown]
  - Retching [Unknown]
  - Headache [Not Recovered/Not Resolved]
  - Brain oedema [Unknown]
  - Infection [Recovered/Resolved]
  - Nausea [Unknown]
  - Productive cough [Unknown]
  - Condition aggravated [Not Recovered/Not Resolved]
  - Cough [Not Recovered/Not Resolved]
  - Tumour marker increased [Unknown]
  - Oropharyngeal pain [Not Recovered/Not Resolved]
  - White blood cell count increased [Unknown]
  - Spinal column injury [Unknown]
  - Fatigue [Not Recovered/Not Resolved]
  - Neck pain [Unknown]

NARRATIVE: CASE EVENT DATE: 201612
